FAERS Safety Report 15121407 (Version 6)
Quarter: 2018Q3

REPORT INFORMATION
  Report Type: Spontaneous
  Country: US (occurrence: US)
  Receive Date: 20180709
  Receipt Date: 20180925
  Transmission Date: 20181010
  Serious: No
  Sender: FDA-Public Use
  Company Number: US-PFIZER INC-2018273798

PATIENT
  Age: 41 Year
  Sex: Female

DRUGS (4)
  1. DAPTOMYCIN. [Suspect]
     Active Substance: DAPTOMYCIN
     Dosage: UNK
     Route: 042
  2. DAPTOMYCIN. [Suspect]
     Active Substance: DAPTOMYCIN
     Dosage: UNK
     Route: 042
  3. DAPTOMYCIN. [Suspect]
     Active Substance: DAPTOMYCIN
     Dosage: UNK
     Route: 042
  4. DAPTOMYCIN. [Suspect]
     Active Substance: DAPTOMYCIN
     Indication: MASTOIDITIS
     Dosage: UNK
     Route: 042

REACTIONS (2)
  - Dyskinesia [Not Recovered/Not Resolved]
  - Tremor [Not Recovered/Not Resolved]
